FAERS Safety Report 25483614 (Version 1)
Quarter: 2025Q2

REPORT INFORMATION
  Report Type: Spontaneous
  Country: US (occurrence: None)
  Receive Date: 20250625
  Receipt Date: 20250625
  Transmission Date: 20250716
  Serious: Yes (Hospitalization)
  Sender: FDA-CTU
  Company Number: None

PATIENT
  Age: 74 Year
  Sex: Male
  Weight: 61 kg

DRUGS (1)
  1. OJJAARA [Suspect]
     Active Substance: MOMELOTINIB DIHYDROCHLORIDE MONOHYDRATE
     Indication: Myelofibrosis
     Dosage: FREQUENCY : DAILY;?
     Route: 048
     Dates: start: 20250228

REACTIONS (2)
  - Dyspnoea [None]
  - Pneumonia [None]

NARRATIVE: CASE EVENT DATE: 20250624
